FAERS Safety Report 6056608-3 (Version None)
Quarter: 2009Q1

REPORT INFORMATION
  Report Type: 
  Country: None (occurrence: None)
  Receive Date: 20090126
  Receipt Date: 20090126
  Transmission Date: 20090719
  Serious: Yes (Other)
  Sender: FDA-Public Use
  Company Number: None

PATIENT
  Age: 60 Year
  Sex: Male
  Weight: 135.1719 kg

DRUGS (7)
  1. REMICADE [Suspect]
     Indication: PSORIASIS
     Dosage: 600 MG EVERY 8 WEEKS IV
     Route: 042
     Dates: start: 20030901, end: 20081201
  2. REMICADE [Suspect]
     Indication: PSORIATIC ARTHROPATHY
     Dosage: 600 MG EVERY 8 WEEKS IV
     Route: 042
     Dates: start: 20030901, end: 20081201
  3. AVAPRO [Concomitant]
  4. TOPROL-XL [Concomitant]
  5. ZOCOR [Concomitant]
  6. FOLIC ACID [Concomitant]
  7. ASPIRIN [Concomitant]

REACTIONS (6)
  - FATIGUE [None]
  - INGUINAL MASS [None]
  - LYMPHADENOPATHY [None]
  - MALAISE [None]
  - PYREXIA [None]
  - WEIGHT DECREASED [None]
